FAERS Safety Report 6583783-4 (Version None)
Quarter: 2010Q1

REPORT INFORMATION
  Report Type: 
  Country: None (occurrence: None)
  Receive Date: 20100213
  Receipt Date: 20100213
  Transmission Date: 20100710
  Serious: No
  Sender: FDA-Public Use
  Company Number: None

PATIENT
  Sex: Female
  Weight: 97.5234 kg

DRUGS (1)
  1. BENZEPRIL HCL 20MG MYLAN [Suspect]
     Dates: start: 20090901, end: 20100202

REACTIONS (1)
  - TREATMENT FAILURE [None]
